FAERS Safety Report 23428902 (Version 2)
Quarter: 2025Q3

REPORT INFORMATION
  Report Type: Report from Study
  Country: US (occurrence: US)
  Receive Date: 20240122
  Receipt Date: 20250801
  Transmission Date: 20251021
  Serious: Yes (Hospitalization)
  Sender: BIOGEN
  Company Number: US-BIOGEN-2024BI01245699

PATIENT
  Age: 57 Year
  Sex: Female

DRUGS (2)
  1. PLEGRIDY [Suspect]
     Active Substance: PEGINTERFERON BETA-1A
     Indication: Multiple sclerosis
     Route: 050
     Dates: start: 20170616
  2. PLEGRIDY [Suspect]
     Active Substance: PEGINTERFERON BETA-1A
     Route: 050
     Dates: start: 20170616

REACTIONS (4)
  - Wound infection [Not Recovered/Not Resolved]
  - Limb injury [Unknown]
  - Oedema peripheral [Unknown]
  - Overweight [Unknown]

NARRATIVE: CASE EVENT DATE: 20230901
